FAERS Safety Report 16133949 (Version 2)
Quarter: 2019Q3

REPORT INFORMATION
  Report Type: Spontaneous
  Country: US (occurrence: US)
  Receive Date: 20190329
  Receipt Date: 20190923
  Transmission Date: 20191004
  Serious: No
  Sender: FDA-Public Use
  Company Number: US-MYLANLABS-2019M1021405

PATIENT
  Sex: Female
  Weight: 91 kg

DRUGS (2)
  1. FENTANYL TRANSDERMAL SYSTEM [Suspect]
     Active Substance: FENTANYL
     Indication: PAIN
     Dosage: UNK
     Route: 062
     Dates: start: 201901
  2. FENTANYL TRANSDERMAL SYSTEM [Suspect]
     Active Substance: FENTANYL
     Dosage: UNK
     Route: 062

REACTIONS (3)
  - Therapeutic product effect decreased [Unknown]
  - Product adhesion issue [Unknown]
  - Product residue present [Unknown]

NARRATIVE: CASE EVENT DATE: 2019
